FAERS Safety Report 25136650 (Version 12)
Quarter: 2025Q4

REPORT INFORMATION
  Report Type: Spontaneous
  Country: EU (occurrence: EU)
  Receive Date: 20250328
  Receipt Date: 20251110
  Transmission Date: 20260118
  Serious: Yes (Death, Life-Threatening, Hospitalization, Other)
  Sender: NOVARTIS
  Company Number: EU-002147023-NVSC2025RO052379

PATIENT
  Age: 9 Month
  Sex: Male
  Weight: 8 kg

DRUGS (8)
  1. ZOLGENSMA [Suspect]
     Active Substance: ONASEMNOGENE ABEPARVOVEC-XIOI
     Indication: Spinal muscular atrophy
     Dosage: 44 ML, ONCE/SINGLE (8,8X10 X14 IS EQUAL TO 44 ML (2 VIALS OF 5.5 ML AND 4 VIALS OF 8.3 ML))
     Route: 042
     Dates: start: 20241010, end: 20241010
  2. PREDNISONE [Concomitant]
     Active Substance: PREDNISONE
     Indication: Product used for unknown indication
     Dosage: 7.5 UNK (7.5 MG/ZI)
     Route: 065
     Dates: start: 20241009
  3. PREDNISONE [Concomitant]
     Active Substance: PREDNISONE
     Dosage: 5 UNK (5MG/ZI)
     Route: 065
     Dates: start: 20241108
  4. PREDNISONE [Concomitant]
     Active Substance: PREDNISONE
     Dosage: 2.5 UNK (2.5 MG/ZI)
     Route: 065
     Dates: start: 20241123, end: 20241207
  5. PREDNISOLONE [Concomitant]
     Active Substance: PREDNISOLONE
     Indication: Product used for unknown indication
     Dosage: 1 MG/KG, QD
     Route: 065
  6. MEDROL [Concomitant]
     Active Substance: METHYLPREDNISOLONE
     Indication: Product used for unknown indication
     Dosage: UNK
     Route: 065
  7. DEXAMETHASONE [Concomitant]
     Active Substance: DEXAMETHASONE
     Indication: Product used for unknown indication
     Dosage: UNK
     Route: 042
  8. PALIVIZUMAB [Concomitant]
     Active Substance: PALIVIZUMAB
     Indication: Immunisation
     Dosage: 100 MG, ONCE/SINGLE
     Route: 065
     Dates: start: 202411, end: 202503

REACTIONS (12)
  - Sepsis [Fatal]
  - Cardio-respiratory arrest [Not Recovered/Not Resolved]
  - Pallor [Not Recovered/Not Resolved]
  - Cyanosis [Not Recovered/Not Resolved]
  - Coma [Not Recovered/Not Resolved]
  - Brain hypoxia [Unknown]
  - Respiratory tract infection [Not Recovered/Not Resolved]
  - Pseudomonas infection [Not Recovered/Not Resolved]
  - Staphylococcal infection [Not Recovered/Not Resolved]
  - Pyrexia [Unknown]
  - Aspartate aminotransferase increased [Recovered/Resolved]
  - Alanine aminotransferase increased [Recovered/Resolved]

NARRATIVE: CASE EVENT DATE: 20241017
